FAERS Safety Report 5911220-9 (Version None)
Quarter: 2008Q4

REPORT INFORMATION
  Report Type: 
  Country: None (occurrence: None)
  Receive Date: 20081007
  Receipt Date: 20080922
  Transmission Date: 20090506
  Serious: Yes (Death)
  Sender: FDA-Public Use
  Company Number: RU-GENENTECH-268858

PATIENT
  Sex: Male

DRUGS (15)
  1. BLINDED BEVACIZUMAB [Suspect]
     Indication: B-CELL LYMPHOMA
     Dosage: UNK MG/M2, Q3W
     Route: 042
     Dates: start: 20080811
  2. CYCLOPHOSPHAMIDE [Suspect]
     Indication: B-CELL LYMPHOMA
     Dosage: UNK MG/M2, Q3W
     Route: 042
     Dates: start: 20080811
  3. DOXORUBICIN HCL [Suspect]
     Indication: B-CELL LYMPHOMA
     Dosage: UNK MG/M2, Q3W
     Route: 042
     Dates: start: 20080811
  4. BLINDED PLACEBO [Suspect]
     Indication: B-CELL LYMPHOMA
     Dosage: UNK MG/M2, Q3W
     Route: 042
     Dates: start: 20080811
  5. PREDNISONE TAB [Suspect]
     Indication: B-CELL LYMPHOMA
     Dosage: UNK MG/M2, Q3W
     Route: 042
     Dates: start: 20080811
  6. BLINDED RITUXIMAB [Suspect]
     Indication: B-CELL LYMPHOMA
     Dosage: UNK MG/M2, Q3W
     Route: 042
     Dates: start: 20080811
  7. VINCRISTINE [Suspect]
     Indication: B-CELL LYMPHOMA
     Dosage: UNK MG/M2, Q3W
     Route: 042
     Dates: start: 20080811
  8. RITUXAN [Suspect]
     Indication: B-CELL LYMPHOMA
     Dosage: 375 MG/M2, Q3W
     Dates: start: 20080812
  9. CYCLOPHOSPHAMIDE [Suspect]
     Indication: B-CELL LYMPHOMA
     Dosage: 50 MG/M2, Q3W
     Route: 042
     Dates: start: 20080812
  10. DOXORUBICIN HCL [Suspect]
     Indication: DIFFUSE LARGE B-CELL LYMPHOMA
     Dosage: 50 MG/M2, Q3W
     Route: 042
     Dates: start: 20080812
  11. VINCRISTINE [Suspect]
     Indication: DIFFUSE LARGE B-CELL LYMPHOMA
     Dosage: 1.4 MG/M2, Q3W
     Route: 042
     Dates: start: 20080812
  12. PREDNISONE TAB [Suspect]
     Indication: DIFFUSE LARGE B-CELL LYMPHOMA
     Dosage: 100 MG, QDX5D/21DC
     Route: 048
     Dates: start: 20080812
  13. CEFEPIME [Concomitant]
     Indication: DRUG USE FOR UNKNOWN INDICATION
     Dosage: UNK
     Dates: start: 20080908, end: 20080915
  14. METRONIDAZOLE [Concomitant]
     Indication: DRUG USE FOR UNKNOWN INDICATION
     Dosage: UNK
     Dates: start: 20080908, end: 20080915
  15. DEXTROSE [Concomitant]
     Indication: DRUG USE FOR UNKNOWN INDICATION
     Dosage: UNK
     Dates: start: 20080908, end: 20080915

REACTIONS (1)
  - SEPTIC SHOCK [None]
